FAERS Safety Report 7996278-8 (Version None)
Quarter: 2011Q4

REPORT INFORMATION
  Report Type: 
  Country: None (occurrence: None)
  Receive Date: 20111220
  Receipt Date: 20111212
  Transmission Date: 20120403
  Serious: Yes (Other)
  Sender: FDA-Public Use
  Company Number: JP-ELI_LILLY_AND_COMPANY-JP201110002226

PATIENT
  Age: 65 Year
  Sex: Male

DRUGS (2)
  1. GEMZAR [Suspect]
     Indication: NON-SMALL CELL LUNG CANCER
     Route: 042
  2. CISPLATIN [Concomitant]
     Indication: NON-SMALL CELL LUNG CANCER

REACTIONS (1)
  - BRADYARRHYTHMIA [None]
